FAERS Safety Report 16236717 (Version 5)
Quarter: 2019Q2

REPORT INFORMATION
  Report Type: Spontaneous
  Country: GB (occurrence: GB)
  Receive Date: 20190425
  Receipt Date: 20190522
  Transmission Date: 20190711
  Serious: Yes (Life-Threatening, Hospitalization, Other)
  Sender: FDA-Public Use
  Company Number: GB-AUROBINDO-AUR-APL-2019-021281

PATIENT

DRUGS (1)
  1. PARACETAMOL [Suspect]
     Active Substance: ACETAMINOPHEN
     Indication: PRODUCT USED FOR UNKNOWN INDICATION
     Dosage: 60 GRAM
     Route: 065

REACTIONS (11)
  - Hypotension [Recovered/Resolved]
  - Lactic acidosis [Recovered/Resolved]
  - Consciousness fluctuating [Recovered/Resolved]
  - Mitochondrial toxicity [Recovered/Resolved]
  - Drug level increased [Recovered/Resolved]
  - Blood lactic acid increased [Recovered/Resolved]
  - Coma scale abnormal [Recovered/Resolved]
  - Haemodynamic instability [Recovered/Resolved]
  - Intentional overdose [Recovered/Resolved]
  - Metabolic disorder [Recovered/Resolved]
  - General physical health deterioration [Recovered/Resolved]
